FAERS Safety Report 5663646-9 (Version None)
Quarter: 2008Q1

REPORT INFORMATION
  Report Type: 
  Country: None (occurrence: None)
  Receive Date: 20080307
  Receipt Date: 20080221
  Transmission Date: 20080703
  Serious: Yes (Other)
  Sender: FDA-Public Use
  Company Number: 2008S1003053

PATIENT
  Age: 43 Year
  Sex: Female

DRUGS (13)
  1. CITALOPRAM HYDROBROMIDE [Suspect]
     Indication: DEPRESSION
     Dosage: 20 MG;ORAL
     Route: 048
     Dates: start: 20060101, end: 20080111
  2. CITALOPRAM HYDROBROMIDE [Suspect]
     Indication: DEPRESSION
     Dosage: 20 MG;ORAL
     Route: 048
     Dates: start: 20080111, end: 20080128
  3. ASCORBIC ACID [Concomitant]
  4. CARBAMAZEPINE [Concomitant]
  5. DANTROLENE SODIUM [Concomitant]
  6. LANSOPRAZOLE [Concomitant]
  7. METOCLOPRAMIDE [Concomitant]
  8. PROPANTHELINE [Concomitant]
  9. PYRIDOXINE [Concomitant]
  10. SENNA [Concomitant]
  11. TIZANIDINE HCL [Concomitant]
  12. TOLTERODINE TARTRATE [Concomitant]
  13. TRIMETHOPRIM [Concomitant]

REACTIONS (1)
  - BLOOD SODIUM INCREASED [None]
